FAERS Safety Report 16275594 (Version 1)
Quarter: 2019Q2

REPORT INFORMATION
  Report Type: Spontaneous
  Country: US (occurrence: US)
  Receive Date: 20190506
  Receipt Date: 20190506
  Transmission Date: 20190711
  Serious: Yes (Other)
  Sender: FDA-Public Use
  Company Number: US-SA-2019SA120019

PATIENT

DRUGS (1)
  1. APIDRA [Suspect]
     Active Substance: INSULIN GLULISINE

REACTIONS (4)
  - Loss of consciousness [Unknown]
  - Fall [Unknown]
  - Drug ineffective [Unknown]
  - Shock hypoglycaemic [Unknown]
